FAERS Safety Report 7130443-7 (Version None)
Quarter: 2010Q4

REPORT INFORMATION
  Report Type: 
  Country: None (occurrence: None)
  Receive Date: 20101201
  Receipt Date: 20101122
  Transmission Date: 20110411
  Serious: Yes (Other)
  Sender: FDA-Public Use
  Company Number: US-SANOFI-AVENTIS-2010SA066096

PATIENT
  Age: 86 Year
  Sex: Female

DRUGS (15)
  1. MULTAQ [Suspect]
     Indication: ATRIAL FLUTTER
     Route: 048
     Dates: start: 20101020, end: 20101022
  2. ASPIRIN [Concomitant]
  3. ANTACIDS [Concomitant]
  4. ATIVAN [Concomitant]
  5. CARAFATE [Concomitant]
  6. CENTRUM SILVER [Concomitant]
  7. FENOFIBRATE [Concomitant]
     Route: 048
  8. FERROUS SULFATE TAB [Concomitant]
     Route: 048
  9. METOPROLOL SUCCINATE [Concomitant]
     Route: 048
  10. MINITRAN [Concomitant]
  11. SIMVASTATIN [Concomitant]
  12. DARVOCET-N 100 [Concomitant]
  13. FUROSEMIDE [Concomitant]
     Route: 048
  14. KAON CL [Concomitant]
     Route: 048
  15. OMEPRAZOLE [Concomitant]
     Route: 048

REACTIONS (5)
  - BLOOD CREATININE INCREASED [None]
  - BLOOD UREA INCREASED [None]
  - GLOMERULAR FILTRATION RATE DECREASED [None]
  - OFF LABEL USE [None]
  - RENAL FAILURE [None]
